FAERS Safety Report 12500921 (Version 2)
Quarter: 2016Q3

REPORT INFORMATION
  Report Type: Spontaneous
  Country: CZ (occurrence: CZ)
  Receive Date: 20160627
  Receipt Date: 20160706
  Transmission Date: 20161109
  Serious: Yes (Other)
  Sender: FDA-Public Use
  Company Number: CZ-TEVA-671235ISR

PATIENT
  Age: 45 Year
  Sex: Female

DRUGS (1)
  1. CLARITHROMYCIN. [Suspect]
     Active Substance: CLARITHROMYCIN
     Indication: URINARY TRACT INFECTION

REACTIONS (3)
  - Urticarial vasculitis [Unknown]
  - Drug withdrawal syndrome [Unknown]
  - Purpura [Recovered/Resolved]
